FAERS Safety Report 7043714-X (Version None)
Quarter: 2010Q4

REPORT INFORMATION
  Report Type: 
  Country: None (occurrence: None)
  Receive Date: 20101013
  Receipt Date: 20101005
  Transmission Date: 20110411
  Serious: Yes (Life-Threatening, Hospitalization, Other)
  Sender: FDA-Public Use
  Company Number: GB-TEVA-251026ISR

PATIENT
  Age: 9 Year
  Sex: Male

DRUGS (1)
  1. BACLOFEN [Suspect]
     Route: 048

REACTIONS (25)
  - AGITATION [None]
  - ALANINE AMINOTRANSFERASE INCREASED [None]
  - ASPARTATE AMINOTRANSFERASE INCREASED [None]
  - BLOOD ALBUMIN INCREASED [None]
  - BLOOD CREATINE PHOSPHOKINASE INCREASED [None]
  - C-REACTIVE PROTEIN INCREASED [None]
  - CHROMATURIA [None]
  - COMA SCALE ABNORMAL [None]
  - COUGH [None]
  - DIARRHOEA [None]
  - DRUG WITHDRAWAL SYNDROME [None]
  - DYSTONIA [None]
  - HAEMATEMESIS [None]
  - HYPERPYREXIA [None]
  - HYPERTENSION [None]
  - HYPOTENSION [None]
  - HYPOXIA [None]
  - LOWER RESPIRATORY TRACT INFECTION [None]
  - MUSCLE SPASTICITY [None]
  - ORAL CANDIDIASIS [None]
  - POSTURING [None]
  - RHABDOMYOLYSIS [None]
  - TACHYCARDIA [None]
  - TACHYPNOEA [None]
  - VOMITING [None]
